FAERS Safety Report 5595647-3 (Version None)
Quarter: 2008Q1

REPORT INFORMATION
  Report Type: 
  Country: None (occurrence: None)
  Receive Date: 20080116
  Receipt Date: 20080116
  Transmission Date: 20080703
  Serious: Yes (Other)
  Sender: FDA-Public Use
  Company Number: None

PATIENT
  Age: 68 Year
  Sex: Male

DRUGS (1)
  1. NEXAVAR [Suspect]
     Indication: HEPATIC NEOPLASM
     Dosage: 400MG DAILY PO
     Route: 048
     Dates: start: 20071030, end: 20071231

REACTIONS (2)
  - EPISTAXIS [None]
  - PHARYNGEAL HAEMORRHAGE [None]
